FAERS Safety Report 5490617-8 (Version None)
Quarter: 2007Q4

REPORT INFORMATION
  Report Type: 
  Country: None (occurrence: None)
  Receive Date: 20071019
  Receipt Date: 20071009
  Transmission Date: 20080405
  Serious: Yes (Other)
  Sender: FDA-Public Use
  Company Number: PHHO2007IN09653

PATIENT
  Age: 26 Year
  Sex: Male

DRUGS (4)
  1. NEORAL [Suspect]
     Indication: RENAL TRANSPLANT
     Dosage: 400 MG, QD
     Route: 048
     Dates: start: 20070529
  2. MYCOPHENOLATE MOFETIL [Concomitant]
     Dates: start: 20060530
  3. PREDNISOLONE [Concomitant]
     Dates: start: 20060601
  4. PANTOPRAZOLE SODIUM [Concomitant]
     Dates: start: 20060530

REACTIONS (7)
  - BLOOD CREATININE INCREASED [None]
  - BLOOD LACTATE DEHYDROGENASE INCREASED [None]
  - HAEMOLYTIC URAEMIC SYNDROME [None]
  - LIVER FUNCTION TEST ABNORMAL [None]
  - PLATELET COUNT DECREASED [None]
  - RED BLOOD CELL SCHISTOCYTES PRESENT [None]
  - URINE OUTPUT DECREASED [None]
